FAERS Safety Report 17722557 (Version 1)
Quarter: 2020Q2

REPORT INFORMATION
  Report Type: Spontaneous
  Country: ES (occurrence: ES)
  Receive Date: 20200429
  Receipt Date: 20200429
  Transmission Date: 20200714
  Serious: Yes (Hospitalization, Other)
  Sender: FDA-Public Use
  Company Number: ES-PFIZER INC-2020167033

PATIENT
  Age: 57 Year
  Sex: Male

DRUGS (4)
  1. ATORVASTATIN CALCIUM. [Suspect]
     Active Substance: ATORVASTATIN CALCIUM
     Dosage: 10 MG, 1X/DAY  (0-0-1)
     Route: 048
     Dates: start: 20190605, end: 20191125
  2. ENALAPRIL [Suspect]
     Active Substance: ENALAPRIL
     Dosage: 30 MG, 1X/DAY
     Route: 048
     Dates: start: 20181125, end: 20191125
  3. AZIBE [Suspect]
     Active Substance: EZETIMIBE
     Dosage: 10 MG, 1X/DAY (0-0-1)
     Route: 048
     Dates: start: 20191025, end: 20191125
  4. ALLOPURINOL. [Suspect]
     Active Substance: ALLOPURINOL
     Dosage: 100 MG, 1X/DAY
     Route: 048
     Dates: start: 20120101, end: 20191125

REACTIONS (1)
  - Subarachnoid haemorrhage [Recovered/Resolved with Sequelae]

NARRATIVE: CASE EVENT DATE: 20191125
